FAERS Safety Report 4710481-1 (Version None)
Quarter: 2005Q3

REPORT INFORMATION
  Report Type: 
  Country: None (occurrence: None)
  Receive Date: 20050707
  Receipt Date: 20050616
  Transmission Date: 20060218
  Serious: Yes (Other)
  Sender: FDA-Public Use
  Company Number: GBS050617555

PATIENT
  Age: 66 Year
  Sex: Male

DRUGS (6)
  1. CIALIS [Suspect]
     Indication: ERECTILE DYSFUNCTION
     Dosage: 20 MG
     Dates: start: 20030101
  2. LEVOTHYROXINE SODIUM [Concomitant]
  3. VITAMIN E (HERRAL OIL NOS) [Concomitant]
  4. ASCORBIC ACID [Concomitant]
  5. VITAMIN B6 [Concomitant]
  6. VIAGRA [Concomitant]

REACTIONS (4)
  - CATARACT [None]
  - INTENTIONAL MISUSE [None]
  - NIGHT BLINDNESS [None]
  - THERAPEUTIC RESPONSE UNEXPECTED [None]
